FAERS Safety Report 14936548 (Version 1)
Quarter: 2018Q2

REPORT INFORMATION
  Report Type: Spontaneous
  Country: US (occurrence: US)
  Receive Date: 20180525
  Receipt Date: 20180525
  Transmission Date: 20180711
  Serious: Yes (Death)
  Sender: FDA-Public Use
  Company Number: US-VIFOR (INTERNATIONAL) INC.-VIT-2018-04772

PATIENT
  Age: 90 Year
  Sex: Female

DRUGS (18)
  1. FUROSEMIDE. [Concomitant]
     Active Substance: FUROSEMIDE
  2. OMEPRAZOLE. [Concomitant]
     Active Substance: OMEPRAZOLE
  3. CYANOCOBALAMIN. [Concomitant]
     Active Substance: CYANOCOBALAMIN
  4. SIMVASTATIN. [Concomitant]
     Active Substance: SIMVASTATIN
  5. SENEXON [Concomitant]
     Active Substance: SENNOSIDES A AND B
  6. PARACETAMOL [Concomitant]
     Active Substance: ACETAMINOPHEN
  7. CARVEDILOL. [Concomitant]
     Active Substance: CARVEDILOL
  8. ACETYLSALICYLIC ACID [Concomitant]
     Active Substance: ASPIRIN
  9. PROCRIT [Concomitant]
     Active Substance: ERYTHROPOIETIN
  10. SERTRALINE HYDROCHLORIDE. [Concomitant]
     Active Substance: SERTRALINE HYDROCHLORIDE
  11. TUSSIN DM CLEAR [Concomitant]
  12. MEMANTINE HYDROCHLORIDE. [Concomitant]
     Active Substance: MEMANTINE HYDROCHLORIDE
  13. AMLODIPINE BESILATE [Concomitant]
     Active Substance: AMLODIPINE BESYLATE
  14. VELTASSA [Suspect]
     Active Substance: PATIROMER
     Indication: HYPERKALAEMIA
     Route: 048
     Dates: start: 20170317
  15. COLECALCIFEROL [Concomitant]
     Active Substance: CHOLECALCIFEROL
  16. FERROUS SULFATE. [Concomitant]
     Active Substance: FERROUS SULFATE
  17. BISAC-EVAC [Concomitant]
     Active Substance: BISACODYL
  18. MILK OF MAGNESIA [Concomitant]
     Active Substance: MAGNESIUM HYDROXIDE

REACTIONS (1)
  - Death [Fatal]

NARRATIVE: CASE EVENT DATE: 201803
